FAERS Safety Report 17544470 (Version 2)
Quarter: 2020Q3

REPORT INFORMATION
  Report Type: Spontaneous
  Country: DE (occurrence: DE)
  Receive Date: 20200316
  Receipt Date: 20200819
  Transmission Date: 20201102
  Serious: Yes (Other)
  Sender: FDA-Public Use
  Company Number: DE-PFIZER INC-2020104023

PATIENT
  Age: 32 Year
  Sex: Female
  Weight: 54 kg

DRUGS (1)
  1. CYTOTEC [Suspect]
     Active Substance: MISOPROSTOL
     Indication: LABOUR INDUCTION
     Dosage: 1 DF, SINGLE
     Route: 048
     Dates: start: 20170423, end: 20170423

REACTIONS (4)
  - Circulatory collapse [Unknown]
  - Product use in unapproved indication [Unknown]
  - Uterine tachysystole [Unknown]
  - Off label use [Unknown]

NARRATIVE: CASE EVENT DATE: 20170423
